FAERS Safety Report 6094468-5 (Version None)
Quarter: 2009Q1

REPORT INFORMATION
  Report Type: 
  Country: None (occurrence: None)
  Receive Date: 20090226
  Receipt Date: 20090215
  Transmission Date: 20090719
  Serious: Yes (Other)
  Sender: FDA-Public Use
  Company Number: GB-ROCHE-615252

PATIENT
  Sex: Female
  Weight: 140 kg

DRUGS (11)
  1. ORLISTAT [Suspect]
     Indication: OBESITY
     Route: 048
     Dates: start: 20090112, end: 20090115
  2. APROVEL [Concomitant]
     Indication: BLOOD PRESSURE
     Dosage: DRUG REPORTED: APROEL
     Route: 048
  3. QUININE SULPHATE [Concomitant]
     Route: 048
  4. SIMVASTATIN [Concomitant]
     Route: 048
  5. THYROXINE [Concomitant]
     Indication: HYPOTHYROIDISM
     Route: 048
  6. ZOPICLONE [Concomitant]
     Indication: SOMNOLENCE
     Route: 048
  7. DOXAZOSIN MESYLATE [Concomitant]
     Indication: BLOOD PRESSURE
     Route: 048
  8. ASPIRIN [Concomitant]
     Indication: UNEVALUABLE EVENT
     Route: 048
  9. BENDROFLUMETHIAZIDE [Concomitant]
     Indication: BLOOD PRESSURE
     Dosage: DRUG REPORTED: BENDROFLUMETHIZIDE
     Route: 048
  10. ADCAL D3 [Concomitant]
     Route: 048
  11. VITAMIN B-12 [Concomitant]
     Dosage: ROUTE: INJECTION
     Route: 050

REACTIONS (3)
  - HALLUCINATION [None]
  - HEADACHE [None]
  - PARANOIA [None]
